FAERS Safety Report 5374034-7 (Version None)
Quarter: 2007Q2

REPORT INFORMATION
  Report Type: 
  Country: None (occurrence: None)
  Receive Date: 20070627
  Receipt Date: 20070619
  Transmission Date: 20071010
  Serious: Yes (Hospitalization)
  Sender: FDA-Public Use
  Company Number: 163-20785-04050419

PATIENT
  Age: 46 Year
  Sex: Male

DRUGS (1)
  1. THALOMID [Suspect]
     Indication: CUTANEOUS LUPUS ERYTHEMATOSUS
     Dosage: 50 MG, DAILY, ORAL
     Route: 048
     Dates: start: 20010409

REACTIONS (2)
  - CONVERSION DISORDER [None]
  - CONVULSION [None]
